FAERS Safety Report 8988783 (Version 2)
Quarter: 2013Q1

REPORT INFORMATION
  Report Type: Spontaneous
  Country: GB (occurrence: GB)
  Receive Date: 20121228
  Receipt Date: 20130108
  Transmission Date: 20140127
  Serious: Yes (Other)
  Sender: FDA-Public Use
  Company Number: GB-JNJFOC-20121212119

PATIENT
  Age: 73 None
  Sex: Female

DRUGS (2)
  1. XARELTO [Suspect]
     Indication: THROMBOSIS PROPHYLAXIS
     Route: 048
     Dates: start: 20121027
  2. XARELTO [Suspect]
     Indication: KNEE ARTHROPLASTY
     Route: 048
     Dates: start: 20121027

REACTIONS (6)
  - Haemoglobin decreased [Recovering/Resolving]
  - Post procedural haemorrhage [Unknown]
  - Joint swelling [Unknown]
  - Contusion [Unknown]
  - Joint stiffness [Unknown]
  - Local swelling [Unknown]
